FAERS Safety Report 10209234 (Version 1)
Quarter: 2014Q2

REPORT INFORMATION
  Report Type: Spontaneous
  Country: US (occurrence: US)
  Receive Date: 20140530
  Receipt Date: 20140530
  Transmission Date: 20141212
  Serious: No
  Sender: FDA-Public Use
  Company Number: US-009507513-1405USA009195

PATIENT
  Age: 59 Year
  Sex: Female

DRUGS (3)
  1. PEGINTRON [Suspect]
     Indication: HEPATITIS C
     Dosage: 80 MICROGRAM, QW, REDIPEN
     Route: 058
     Dates: start: 201403
  2. RIBAPAK [Suspect]
  3. SOVALDI [Suspect]

REACTIONS (1)
  - Epistaxis [Recovered/Resolved]
